FAERS Safety Report 5205233-2 (Version None)
Quarter: 2007Q1

REPORT INFORMATION
  Report Type: 
  Country: None (occurrence: None)
  Receive Date: 20070110
  Receipt Date: 20061218
  Transmission Date: 20070707
  Serious: Yes (Hospitalization, Other)
  Sender: FDA-Public Use
  Company Number: US-PFIZER INC-2006155430

PATIENT
  Age: 84 Year
  Sex: Male

DRUGS (1)
  1. LYRICA [Suspect]
     Indication: BACK PAIN

REACTIONS (1)
  - VENTRICULAR EXTRASYSTOLES [None]
